FAERS Safety Report 21928606 (Version 1)
Quarter: 2023Q1

REPORT INFORMATION
  Report Type: Spontaneous
  Country: US (occurrence: US)
  Receive Date: 20230130
  Receipt Date: 20230130
  Transmission Date: 20230418
  Serious: No
  Sender: FDA-Public Use
  Company Number: US-drreddys-SPO/USA/23/0159688

PATIENT
  Age: 61 Year
  Sex: Male

DRUGS (14)
  1. LENALIDOMIDE [Suspect]
     Active Substance: LENALIDOMIDE
     Indication: Plasma cell myeloma
     Dosage: TAKE 1 CAPSULE BY MOUTH EVERY DAY ON DAYS 1-14 OF EACH 21 DAY CYCLE
     Route: 048
  2. ALLOPURINOL [Concomitant]
     Active Substance: ALLOPURINOL
     Indication: Product used for unknown indication
  3. LIDOCAINE [Concomitant]
     Active Substance: LIDOCAINE
     Indication: Product used for unknown indication
  4. ACETAMINOPHE TAB 500MG [Concomitant]
     Indication: Product used for unknown indication
  5. ACYCLOVIR [Concomitant]
     Active Substance: ACYCLOVIR
     Indication: Product used for unknown indication
  6. BUDESONIDE SUS 32MCG/ACT [Concomitant]
     Indication: Product used for unknown indication
     Dosage: 32MCG/ACT
  7. DEXAMETHASONE [Concomitant]
     Active Substance: DEXAMETHASONE
     Indication: Product used for unknown indication
  8. DOCUSATE SOD CAP 100MG [Concomitant]
     Indication: Product used for unknown indication
  9. FAMOTIDINE TAB 40MG [Concomitant]
     Indication: Product used for unknown indication
  10. FOLIC ACID TAB 1MG [Concomitant]
     Indication: Product used for unknown indication
  11. NYSTATIN SUS 100000UNIT/M [Concomitant]
     Indication: Product used for unknown indication
     Dosage: 100000UNIT/M
  12. SENNA TAB 8.6MG [Concomitant]
     Indication: Product used for unknown indication
  13. SULFAMETHO A TAB 800-160M [Concomitant]
     Indication: Product used for unknown indication
     Dosage: 800-160M
  14. VITAMIN D TAB 25 MCG(1000 [Concomitant]
     Indication: Product used for unknown indication

REACTIONS (2)
  - Product dose omission issue [Unknown]
  - Product use issue [Unknown]
